FAERS Safety Report 21521540 (Version 1)
Quarter: 2022Q4

REPORT INFORMATION
  Report Type: Spontaneous
  Country: US (occurrence: US)
  Receive Date: 20221028
  Receipt Date: 20221028
  Transmission Date: 20230112
  Serious: No
  Sender: FDA-Public Use
  Company Number: US-SA-SAC20221021000866

PATIENT
  Age: 28 Year
  Sex: Male
  Weight: 97.97 kg

DRUGS (7)
  1. DUPIXENT [Suspect]
     Active Substance: DUPILUMAB
     Indication: Dermatitis atopic
     Dosage: 300 MG, QOW
     Route: 058
     Dates: start: 20221005
  2. PARAFFIN [Concomitant]
     Active Substance: PARAFFIN
  3. IBUPROFEN [Concomitant]
     Active Substance: IBUPROFEN
  4. CORTISONE [Concomitant]
     Active Substance: CORTISONE
  5. ALBUTEROL SULFATE [Concomitant]
     Active Substance: ALBUTEROL SULFATE
  6. AVEENO INTENSE RELIEF HAND [Concomitant]
  7. EUCERIN ITCH RELIEF MOISTURIZING SPRAY [Concomitant]

REACTIONS (4)
  - Skin haemorrhage [Not Recovered/Not Resolved]
  - Dry skin [Not Recovered/Not Resolved]
  - Skin fissures [Not Recovered/Not Resolved]
  - Pruritus [Not Recovered/Not Resolved]

NARRATIVE: CASE EVENT DATE: 20221001
